FAERS Safety Report 8161229-2 (Version None)
Quarter: 2012Q1

REPORT INFORMATION
  Report Type: 
  Country: None (occurrence: None)
  Receive Date: 20120103
  Receipt Date: 20111013
  Transmission Date: 20120608
  Serious: Yes (Other)
  Sender: FDA-Public Use
  Company Number: AE-2011-001837

PATIENT
  Age: 63 Year
  Sex: Female
  Weight: 90.7194 kg

DRUGS (6)
  1. ESTROGEN INHIBITING MEDICATION [Concomitant]
  2. INCIVEK [Suspect]
     Dosage: 2250 MG (750 MG, 1 IN 8 HR), ORAL
     Route: 048
     Dates: start: 20110807
  3. ZOLOFT [Concomitant]
  4. RIBAVIRIN [Concomitant]
  5. LISINOPRIL [Concomitant]
  6. PEGASYS [Concomitant]

REACTIONS (1)
  - ANAEMIA [None]
